FAERS Safety Report 8333645-7 (Version None)
Quarter: 2012Q2

REPORT INFORMATION
  Report Type: 
  Country: None (occurrence: None)
  Receive Date: 20120503
  Receipt Date: 20120425
  Transmission Date: 20120825
  Serious: Yes (Other)
  Sender: FDA-Public Use
  Company Number: US-BAYER-2012-040942

PATIENT

DRUGS (1)
  1. NAPROXEN SODIUM [Suspect]

REACTIONS (5)
  - PRURITUS [None]
  - DRUG HYPERSENSITIVITY [None]
  - EYE SWELLING [None]
  - THROAT TIGHTNESS [None]
  - URTICARIA [None]
